FAERS Safety Report 15926212 (Version 3)
Quarter: 2020Q1

REPORT INFORMATION
  Report Type: Spontaneous
  Country: US (occurrence: US)
  Receive Date: 20190205
  Receipt Date: 20200129
  Transmission Date: 20200409
  Serious: No
  Sender: FDA-Public Use
  Company Number: US-ALLERGAN-1831672US

PATIENT
  Sex: Female

DRUGS (5)
  1. INDOMETHACIN. [Concomitant]
     Active Substance: INDOMETHACIN
     Indication: MIGRAINE
     Dosage: ACTUAL: AS NEEDED, NOT OFTEN
     Route: 048
  2. BOTOX [Suspect]
     Active Substance: ONABOTULINUMTOXINA
     Dosage: UNK
     Route: 030
     Dates: start: 201812, end: 201812
  3. BOTOX [Suspect]
     Active Substance: ONABOTULINUMTOXINA
     Dosage: 150 UNITS, SINGLE
     Route: 030
     Dates: start: 2018, end: 2018
  4. BOTOX [Suspect]
     Active Substance: ONABOTULINUMTOXINA
     Indication: MIGRAINE
     Dosage: UNK
     Route: 030
     Dates: start: 2017, end: 2017
  5. SERTRALINE [Concomitant]
     Active Substance: SERTRALINE HYDROCHLORIDE
     Indication: ANXIETY
     Dosage: 25 MG, QD
     Route: 048

REACTIONS (10)
  - Anxiety [Recovered/Resolved]
  - Dysphagia [Recovered/Resolved]
  - Malaise [Recovered/Resolved]
  - Head discomfort [Recovered/Resolved]
  - Posture abnormal [Recovered/Resolved]
  - Dysphonia [Recovered/Resolved]
  - Influenza like illness [Recovered/Resolved]
  - Autoimmune thyroiditis [Not Recovered/Not Resolved]
  - Fatigue [Recovered/Resolved]
  - Dyspnoea [Recovered/Resolved]

NARRATIVE: CASE EVENT DATE: 2017
